FAERS Safety Report 7737319-2 (Version None)
Quarter: 2011Q3

REPORT INFORMATION
  Report Type: 
  Country: None (occurrence: None)
  Receive Date: 20110908
  Receipt Date: 20110901
  Transmission Date: 20111222
  Serious: Yes (Hospitalization, Other)
  Sender: FDA-Public Use
  Company Number: RU-AMGEN-RUSCT2011045104

PATIENT
  Age: 56 Year
  Weight: 64.9 kg

DRUGS (8)
  1. CALCIUM D3 [Concomitant]
     Dosage: UNK
     Dates: start: 20070329
  2. EGILOK [Concomitant]
     Dosage: 25 MG, UNK
     Route: 048
  3. PANANGIN [Concomitant]
     Dosage: UNK UNK, TID
     Route: 048
     Dates: start: 20070624
  4. LETROZOLE [Concomitant]
     Dosage: 2.5 MG, UNK
     Route: 048
     Dates: start: 20060901
  5. ARIFON [Concomitant]
     Dosage: 1.5 MG, UNK
     Route: 048
     Dates: start: 20070624
  6. ANALGESICS [Concomitant]
     Dosage: UNK
     Dates: start: 20070101
  7. DENOSUMAB [Suspect]
     Indication: METASTASES TO BONE
     Dosage: UNK
     Dates: end: 20110414
  8. BARALGIN [Concomitant]
     Route: 048

REACTIONS (4)
  - PAIN IN JAW [None]
  - PERIODONTITIS [None]
  - EXPOSED BONE IN JAW [None]
  - HEADACHE [None]
